FAERS Safety Report 11147496 (Version 5)
Quarter: 2017Q1

REPORT INFORMATION
  Report Type: Report from Study
  Country: BR (occurrence: BR)
  Receive Date: 20150529
  Receipt Date: 20170202
  Transmission Date: 20170428
  Serious: Yes (Hospitalization, Other)
  Sender: FDA-Public Use
  Company Number: BR-ROCHE-1479924

PATIENT
  Age: 55 Year
  Sex: Female
  Weight: 69 kg

DRUGS (18)
  1. NIMODIPINE. [Concomitant]
     Active Substance: NIMODIPINE
     Indication: VASODILATATION
     Route: 065
  2. FLUOXETINE [Concomitant]
     Active Substance: FLUOXETINE HYDROCHLORIDE
     Route: 065
  3. MABTHERA [Suspect]
     Active Substance: RITUXIMAB
     Route: 042
     Dates: start: 20141030
  4. MABTHERA [Suspect]
     Active Substance: RITUXIMAB
     Route: 042
     Dates: start: 20150513
  5. MABTHERA [Suspect]
     Active Substance: RITUXIMAB
     Indication: RHEUMATOID ARTHRITIS
     Route: 042
     Dates: start: 20141013
  6. VENLAFAXINE [Concomitant]
     Active Substance: VENLAFAXINE HYDROCHLORIDE
  7. GINKGO BILOBA [Concomitant]
     Active Substance: GINKGO
  8. VITAMIN C [Concomitant]
     Active Substance: ASCORBIC ACID
  9. TRENTAL [Concomitant]
     Active Substance: PENTOXIFYLLINE
  10. MABTHERA [Suspect]
     Active Substance: RITUXIMAB
     Route: 042
     Dates: start: 20150529
  11. MAREVAN [Concomitant]
     Active Substance: WARFARIN SODIUM
  12. PENTOXIFYLLINE. [Concomitant]
     Active Substance: PENTOXIFYLLINE
     Indication: VASODILATATION
     Route: 065
  13. ROSUVASTATIN. [Concomitant]
     Active Substance: ROSUVASTATIN
  14. ATORVASTATIN [Concomitant]
     Active Substance: ATORVASTATIN
     Route: 065
  15. MABTHERA [Suspect]
     Active Substance: RITUXIMAB
     Route: 042
     Dates: start: 20160707
  16. VITAMIN E [Concomitant]
     Active Substance: .ALPHA.-TOCOPHEROL
  17. OSTEOBAN [Concomitant]
     Indication: OSTEOPOROSIS
  18. MABTHERA [Suspect]
     Active Substance: RITUXIMAB
     Route: 042
     Dates: start: 201411

REACTIONS (23)
  - Urinary tract infection [Recovered/Resolved]
  - Chills [Recovering/Resolving]
  - Sinusitis [Recovering/Resolving]
  - Abasia [Recovering/Resolving]
  - Erythema [Recovered/Resolved]
  - Nausea [Recovered/Resolved]
  - Bone pain [Recovered/Resolved]
  - Malaise [Not Recovered/Not Resolved]
  - Pain in extremity [Not Recovered/Not Resolved]
  - Inflammation [Not Recovered/Not Resolved]
  - Retinal detachment [Unknown]
  - Rhinalgia [Recovering/Resolving]
  - Eating disorder [Recovering/Resolving]
  - Musculoskeletal chest pain [Recovering/Resolving]
  - Arthritis [Not Recovered/Not Resolved]
  - Asthenia [Not Recovered/Not Resolved]
  - Arrhythmia [Recovered/Resolved]
  - Weight decreased [Not Recovered/Not Resolved]
  - Arthralgia [Not Recovered/Not Resolved]
  - Hypersensitivity [Recovered/Resolved]
  - Cold sweat [Recovered/Resolved]
  - Abdominal pain [Recovering/Resolving]
  - Fatigue [Not Recovered/Not Resolved]

NARRATIVE: CASE EVENT DATE: 20141015
